FAERS Safety Report 12323765 (Version 2)
Quarter: 2016Q3

REPORT INFORMATION
  Report Type: Spontaneous
  Country: US (occurrence: US)
  Receive Date: 20160502
  Receipt Date: 20160916
  Transmission Date: 20161109
  Serious: No
  Sender: FDA-Public Use
  Company Number: US-CELGENEUS-USA-2016046345

PATIENT
  Age: 51 Year
  Sex: Male
  Weight: 102.15 kg

DRUGS (1)
  1. OTEZLA [Suspect]
     Active Substance: APREMILAST
     Indication: PSORIASIS
     Dosage: 60 MILLIGRAM
     Route: 048
     Dates: start: 201602, end: 201606

REACTIONS (3)
  - Throat irritation [Recovered/Resolved]
  - Rhinorrhoea [Recovered/Resolved]
  - Upper-airway cough syndrome [Recovered/Resolved]

NARRATIVE: CASE EVENT DATE: 20160419
